FAERS Safety Report 8075636-X (Version None)
Quarter: 2012Q1

REPORT INFORMATION
  Report Type: 
  Country: None (occurrence: None)
  Receive Date: 20120117
  Receipt Date: 20120109
  Transmission Date: 20120608
  Serious: Yes (Hospitalization, Other)
  Sender: FDA-Public Use
  Company Number: 2012P1002522

PATIENT
  Age: 16 Year
  Sex: Male

DRUGS (2)
  1. NALOXONE [Suspect]
     Indication: OVERDOSE
     Dosage: 0.4 MG;X1;IV ; IV
     Route: 042
  2. MORPHINE [Suspect]
     Indication: OVERDOSE
     Dosage: 3000 MG;X1;PO
     Route: 048

REACTIONS (17)
  - PULMONARY HAEMORRHAGE [None]
  - RESPIRATORY DISTRESS [None]
  - AGITATION [None]
  - PNEUMOTHORAX [None]
  - UNRESPONSIVE TO STIMULI [None]
  - PNEUMONIA ASPIRATION [None]
  - HYPOTENSION [None]
  - WHITE BLOOD CELL COUNT INCREASED [None]
  - STRIDOR [None]
  - EPISTAXIS [None]
  - BLOOD PH DECREASED [None]
  - PNEUMOMEDIASTINUM [None]
  - RED BLOOD CELL SEDIMENTATION RATE INCREASED [None]
  - OVERDOSE [None]
  - HEART RATE INCREASED [None]
  - PLEURAL EFFUSION [None]
  - C-REACTIVE PROTEIN INCREASED [None]
